FAERS Safety Report 10363294 (Version 1)
Quarter: 2014Q1

REPORT INFORMATION
  Report Type: Spontaneous
  Country: US (occurrence: None)
  Receive Date: 20140306
  Receipt Date: 20140306
  Transmission Date: 20141002
  Serious: Yes (Hospitalization, Other)
  Sender: FDA-Public Use
  Company Number: 163-21880-13020730

PATIENT
  Age: 77 Year
  Sex: Male

DRUGS (4)
  1. REVLIMID [Suspect]
     Indication: PLASMA CELL MYELOMA
     Route: 048
     Dates: start: 20121130, end: 20130313
  2. AVEENO (ALLANTOIN) [Concomitant]
  3. DILTIAZEM (DILTIAZEM) [Concomitant]
  4. SOTALOL (SOTALOL) [Concomitant]

REACTIONS (2)
  - Drug eruption [None]
  - Dry skin [None]
